FAERS Safety Report 16077336 (Version 1)
Quarter: 2019Q2

REPORT INFORMATION
  Report Type: Spontaneous
  Country: US (occurrence: US)
  Receive Date: 20190315
  Receipt Date: 20190315
  Transmission Date: 20190711
  Serious: No
  Sender: FDA-Public Use
  Company Number: None

PATIENT
  Age: 71 Year
  Sex: Female
  Weight: 110.25 kg

DRUGS (10)
  1. NIACIN. [Concomitant]
     Active Substance: NIACIN
  2. LOSARTAN POTASSIUM TABLETS [Suspect]
     Active Substance: LOSARTAN POTASSIUM
     Indication: BLOOD PRESSURE MANAGEMENT
     Dosage: ?          QUANTITY:1 TABLET(S);?
     Route: 048
     Dates: start: 20190214, end: 20190313
  3. COMPLETE SENIOR MULTIVITAMIN/MULTIMINERAL SUPPLEMENT [Concomitant]
  4. VITAMIN D3 [Concomitant]
     Active Substance: CHOLECALCIFEROL
  5. COENZYME Q-10 [Concomitant]
  6. CALCIUM MAGNESIUM ZINC [Concomitant]
     Active Substance: CALCIUM\MAGNESIUM\ZINC
  7. GARLIC OIL [Concomitant]
     Active Substance: GARLIC OIL
  8. TUMERIC [Concomitant]
     Active Substance: HERBALS\TURMERIC
  9. GLUCOSAMINE CHONDROITIN + MSM [Concomitant]
     Active Substance: CHONDROITIN SULFATE (BOVINE)\DIMETHYL SULFONE\GLUCOSAMINE SULFATE
  10. PROBIOTICS SUPER ENZYMES [Concomitant]

REACTIONS (14)
  - Eye movement disorder [None]
  - Rash pruritic [None]
  - Self-induced vomiting [None]
  - Arthritis [None]
  - Micturition frequency decreased [None]
  - Muscle twitching [None]
  - Blood pressure increased [None]
  - Asthenia [None]
  - Eye pruritus [None]
  - Peripheral swelling [None]
  - Palpitations [None]
  - Swelling face [None]
  - Hypotension [None]
  - Dysphagia [None]

NARRATIVE: CASE EVENT DATE: 20190214
